FAERS Safety Report 19553011 (Version 2)
Quarter: 2021Q3

REPORT INFORMATION
  Report Type: Report from Study
  Country: US (occurrence: US)
  Receive Date: 20210715
  Receipt Date: 20210720
  Transmission Date: 20211014
  Serious: No
  Sender: FDA-Public Use
  Company Number: NVSC2021US152500

PATIENT
  Age: 77 Year
  Sex: Male
  Weight: 205 kg

DRUGS (1)
  1. ENTRESTO [Suspect]
     Active Substance: SACUBITRIL\VALSARTAN
     Indication: CARDIAC FAILURE
     Dosage: 1 DF, BID
     Route: 048
     Dates: start: 20210614

REACTIONS (3)
  - Confusional state [Unknown]
  - Drug ineffective [Unknown]
  - Speech disorder [Unknown]

NARRATIVE: CASE EVENT DATE: 20210706
